FAERS Safety Report 7310208-3 (Version None)
Quarter: 2011Q1

REPORT INFORMATION
  Report Type: 
  Country: None (occurrence: None)
  Receive Date: 20110224
  Receipt Date: 20110215
  Transmission Date: 20110831
  Serious: No
  Sender: FDA-Public Use
  Company Number: US-PFIZER INC-2010147350

PATIENT
  Sex: Female

DRUGS (4)
  1. LYRICA [Suspect]
     Indication: NEUROPATHY PERIPHERAL
     Dosage: QHS
     Route: 048
     Dates: start: 20101002
  2. ZETIA [Concomitant]
     Indication: BLOOD CHOLESTEROL
     Dosage: 10 MG, UNK
  3. BENICAR [Concomitant]
     Indication: HYPOTENSION
     Dosage: 20 MG, UNK
  4. PROTONIX [Concomitant]
     Indication: REFLUX GASTRITIS
     Dosage: 40 MG, UNK

REACTIONS (2)
  - VISION BLURRED [None]
  - DRY EYE [None]
